FAERS Safety Report 17694919 (Version 1)
Quarter: 2020Q2

REPORT INFORMATION
  Report Type: Spontaneous
  Country: US (occurrence: US)
  Receive Date: 20200422
  Receipt Date: 20200422
  Transmission Date: 20200714
  Serious: No
  Sender: FDA-Public Use
  Company Number: US-VIFOR (INTERNATIONAL) INC.-VIT-2020-05170

PATIENT
  Age: 58 Year
  Sex: Male

DRUGS (13)
  1. ATORVASTATIN [Concomitant]
     Active Substance: ATORVASTATIN
  2. PROZAC [Concomitant]
     Active Substance: FLUOXETINE HYDROCHLORIDE
  3. LOSARTAN. [Concomitant]
     Active Substance: LOSARTAN
  4. SPIRONOLACT [Concomitant]
     Active Substance: SPIRONOLACTONE
  5. VELTASSA [Suspect]
     Active Substance: PATIROMER
     Indication: HYPERKALAEMIA
     Route: 048
     Dates: start: 20180112
  6. VITAMIN D3 [Concomitant]
     Active Substance: CHOLECALCIFEROL
  7. CARVEDILOL. [Concomitant]
     Active Substance: CARVEDILOL
  8. HYDRALAZINE [Concomitant]
     Active Substance: HYDRALAZINE HYDROCHLORIDE
  9. AMLODIPINE [Concomitant]
     Active Substance: AMLODIPINE BESYLATE
  10. INSULIN [Concomitant]
     Active Substance: INSULIN NOS
  11. IRON [Concomitant]
     Active Substance: IRON
  12. MINOXIDIL. [Concomitant]
     Active Substance: MINOXIDIL
  13. LASIX [Concomitant]
     Active Substance: FUROSEMIDE

REACTIONS (2)
  - Dialysis [Unknown]
  - Therapy change [Unknown]

NARRATIVE: CASE EVENT DATE: 2020
